FAERS Safety Report 20189985 (Version 1)
Quarter: 2021Q4

REPORT INFORMATION
  Report Type: Report from Study
  Country: FR (occurrence: FR)
  Receive Date: 20211215
  Receipt Date: 20211215
  Transmission Date: 20220303
  Serious: Yes (Death)
  Sender: FDA-Public Use
  Company Number: FR-BAXTER-2021BAX034123

PATIENT
  Age: 67 Year
  Sex: Male

DRUGS (5)
  1. DOXORUBICIN [Suspect]
     Active Substance: DOXORUBICIN
     Indication: Plasma cell myeloma
     Dosage: 80 MILLIGRAM, QW,1 WEEK/CYCLE
     Route: 065
     Dates: end: 20180118
  2. DEXAMETHASONE [Suspect]
     Active Substance: DEXAMETHASONE
     Indication: Plasma cell myeloma
     Dosage: 160 MILLIGRAM, QW,1 WEEK/CYCLE
     Route: 065
     Dates: end: 20180118
  3. CARBOPLATIN [Suspect]
     Active Substance: CARBOPLATIN
     Indication: Plasma cell myeloma
     Dosage: 300 MILLIGRAM, QW,1 WEEK/CYCLE
     Route: 065
     Dates: end: 20180118
  4. CYCLOPHOSPHAMIDE [Suspect]
     Active Substance: CYCLOPHOSPHAMIDE
     Indication: Plasma cell myeloma
     Dosage: 800 MILLIGRAM, QW, 1 WEEK/CYCLE
     Route: 065
     Dates: end: 20180118
  5. ETOPOSIDE [Suspect]
     Active Substance: ETOPOSIDE
     Indication: Plasma cell myeloma
     Dosage: 320 MILLIGRAM, QW, 1 WEEK/CYCLE
     Route: 065
     Dates: end: 20180118

REACTIONS (2)
  - Procedural complication [Fatal]
  - Multiple organ dysfunction syndrome [Fatal]
